FAERS Safety Report 8762613 (Version 3)
Quarter: 2013Q4

REPORT INFORMATION
  Report Type: Report from Study
  Country: AR (occurrence: AR)
  Receive Date: 20120830
  Receipt Date: 20131031
  Transmission Date: 20140711
  Serious: Yes (Other)
  Sender: FDA-Public Use
  Company Number: AR-ROCHE-1109227

PATIENT
  Sex: Female

DRUGS (1)
  1. RANIBIZUMAB [Suspect]
     Indication: MACULOPATHY
     Route: 050
     Dates: start: 2009

REACTIONS (3)
  - Maculopathy [Not Recovered/Not Resolved]
  - Disease progression [Not Recovered/Not Resolved]
  - Blindness unilateral [Not Recovered/Not Resolved]
